FAERS Safety Report 7609172-9 (Version None)
Quarter: 2011Q3

REPORT INFORMATION
  Report Type: 
  Country: None (occurrence: None)
  Receive Date: 20110713
  Receipt Date: 20110713
  Transmission Date: 20111222
  Serious: Yes (Death)
  Sender: FDA-Public Use
  Company Number: None

PATIENT
  Age: 80 Year
  Sex: Male

DRUGS (10)
  1. DOCUSATE [Concomitant]
  2. LORAZEPAM [Concomitant]
  3. REVLIMID [Suspect]
     Dosage: REVLIMID 5 MG DAILY X21D/28D ORALLY
     Route: 048
  4. AMIODARONE HCL [Concomitant]
  5. FLUOXETINE [Concomitant]
  6. ATENOLOL [Concomitant]
  7. ALLOPURINOL [Concomitant]
  8. REVLIMID [Suspect]
     Indication: MULTIPLE MYELOMA
     Dosage: REVLIMID 10 MG DAILY X21D/28D ORALLY
     Route: 048
     Dates: start: 20100301, end: 20100401
  9. ZOLPIDEM [Concomitant]
  10. DOXEPIN [Concomitant]

REACTIONS (5)
  - SYNCOPE [None]
  - ATRIAL FIBRILLATION [None]
  - RASH [None]
  - ASTHENIA [None]
  - PRESYNCOPE [None]
